FAERS Safety Report 6705323-9 (Version None)
Quarter: 2010Q2

REPORT INFORMATION
  Report Type: 
  Country: None (occurrence: None)
  Receive Date: 20100501
  Receipt Date: 20100420
  Transmission Date: 20101027
  Serious: Yes (Hospitalization)
  Sender: FDA-Public Use
  Company Number: US-ELI_LILLY_AND_COMPANY-US201004005933

PATIENT
  Age: 7 Year
  Sex: Male

DRUGS (3)
  1. STRATTERA [Suspect]
     Indication: ATTENTION DEFICIT/HYPERACTIVITY DISORDER
     Dosage: 40 MG, UNK
     Dates: start: 20090701
  2. STRATTERA [Suspect]
     Dosage: 60 MG, UNK
  3. PULMICORT [Concomitant]
     Indication: ASTHMA
     Dosage: UNK, EACH EVENING

REACTIONS (6)
  - ABDOMINAL PAIN UPPER [None]
  - DECREASED APPETITE [None]
  - DRUG INEFFECTIVE [None]
  - GROWTH RETARDATION [None]
  - NAUSEA [None]
  - UPPER RESPIRATORY TRACT INFECTION [None]
